FAERS Safety Report 6119692-4 (Version None)
Quarter: 2009Q1

REPORT INFORMATION
  Report Type: 
  Country: None (occurrence: None)
  Receive Date: 20090316
  Receipt Date: 20090303
  Transmission Date: 20090719
  Serious: Yes (Other)
  Sender: FDA-Public Use
  Company Number: US-PFIZER INC-2009157892

PATIENT
  Sex: Female
  Weight: 72.562 kg

DRUGS (6)
  1. CHANTIX [Suspect]
     Indication: SMOKING CESSATION THERAPY
     Dates: start: 20081001, end: 20090112
  2. ANTIHYPERTENSIVES [Concomitant]
     Dosage: UNK
  3. ENZYMES [Concomitant]
     Dosage: UNK
  4. CARDIZEM CD [Concomitant]
     Dosage: 240 MG, 1X/DAY
  5. LORTAB [Concomitant]
     Dosage: UNK
  6. ULTRASE MT20 [Concomitant]
     Dosage: UNK

REACTIONS (25)
  - ABNORMAL DREAMS [None]
  - ACTIVITIES OF DAILY LIVING IMPAIRED [None]
  - ANXIETY [None]
  - CONFUSIONAL STATE [None]
  - CRYING [None]
  - DEPRESSION [None]
  - DISTURBANCE IN ATTENTION [None]
  - DYSGEUSIA [None]
  - DYSPEPSIA [None]
  - FATIGUE [None]
  - FEELING ABNORMAL [None]
  - FLATULENCE [None]
  - HALLUCINATION [None]
  - HYPOAESTHESIA [None]
  - HYPOAESTHESIA FACIAL [None]
  - IRRITABILITY [None]
  - LOSS OF CONSCIOUSNESS [None]
  - MENTAL IMPAIRMENT [None]
  - MENTAL STATUS CHANGES [None]
  - MOOD ALTERED [None]
  - NAUSEA [None]
  - PARAESTHESIA ORAL [None]
  - STRESS [None]
  - THINKING ABNORMAL [None]
  - VISUAL IMPAIRMENT [None]
